FAERS Safety Report 20485738 (Version 1)
Quarter: 2022Q1

REPORT INFORMATION
  Report Type: Spontaneous
  Country: US (occurrence: None)
  Receive Date: 20220217
  Receipt Date: 20220217
  Transmission Date: 20220423
  Serious: No
  Sender: FDA-Public Use
  Company Number: None

PATIENT
  Age: 74 Year
  Sex: Male
  Weight: 72.9 kg

DRUGS (1)
  1. SURE ANTIPERSPIRANT DEODORANT REGULAR [Suspect]
     Active Substance: ALUMINUM CHLOROHYDRATE
     Indication: Skin odour abnormal
     Dosage: OTHER QUANTITY : 3 3;?
     Route: 061

REACTIONS (2)
  - Fatigue [None]
  - Headache [None]

NARRATIVE: CASE EVENT DATE: 20210715
